FAERS Safety Report 7476919-4 (Version None)
Quarter: 2011Q2

REPORT INFORMATION
  Report Type: 
  Country: None (occurrence: None)
  Receive Date: 20110512
  Receipt Date: 20110506
  Transmission Date: 20111010
  Serious: Yes (Other)
  Sender: FDA-Public Use
  Company Number: US-GILEAD-2011-0039203

PATIENT
  Sex: Male

DRUGS (1)
  1. ATRIPLA [Suspect]
     Indication: HIV INFECTION
     Dates: start: 20110101, end: 20110101

REACTIONS (5)
  - ANGIOEDEMA [None]
  - OEDEMA PERIPHERAL [None]
  - LIP SWELLING [None]
  - CYANOSIS [None]
  - OROPHARYNGEAL BLISTERING [None]
